FAERS Safety Report 4425039-1 (Version None)
Quarter: 2004Q3

REPORT INFORMATION
  Report Type: 
  Country: None (occurrence: None)
  Receive Date: 20040813
  Receipt Date: 20040809
  Transmission Date: 20050211
  Serious: Yes (Hospitalization, Other)
  Sender: FDA-Public Use
  Company Number: 200415996US

PATIENT
  Age: 62 Year
  Sex: Female
  Weight: 76 kg

DRUGS (4)
  1. ARAVA [Suspect]
     Indication: INTERSTITIAL LUNG DISEASE
     Dosage: DOSE: UNK
     Route: 048
     Dates: start: 20030601, end: 20031002
  2. PREDNISONE [Suspect]
     Indication: ANTIINFLAMMATORY THERAPY
     Route: 048
     Dates: start: 20030601, end: 20031002
  3. ZOLOFT [Concomitant]
  4. LIPITOR [Concomitant]

REACTIONS (16)
  - BACK PAIN [None]
  - BLOOD GLUCOSE INCREASED [None]
  - CELLULITIS [None]
  - CHOKING [None]
  - CONDITION AGGRAVATED [None]
  - CONFUSIONAL STATE [None]
  - DYSPNOEA [None]
  - FATIGUE [None]
  - HYPERTENSION [None]
  - INTERSTITIAL LUNG DISEASE [None]
  - MUSCULAR WEAKNESS [None]
  - MYOPATHY [None]
  - NEUROPATHY [None]
  - PANCREATITIS [None]
  - PARTIAL LIPODYSTROPHY [None]
  - WEIGHT INCREASED [None]
